FAERS Safety Report 5026828-5 (Version None)
Quarter: 2006Q2

REPORT INFORMATION
  Report Type: 
  Country: None (occurrence: None)
  Receive Date: 20060609
  Receipt Date: 20060531
  Transmission Date: 20061013
  Serious: Yes (Other)
  Sender: FDA-Public Use
  Company Number: 2006-05-2586

PATIENT
  Age: 29 Year
  Sex: Female

DRUGS (3)
  1. BETAMETHASONE [Suspect]
     Indication: MATERNAL THERAPY TO ENHANCE FOETAL LUNG MATURITY
  2. AMPICILLIN SODIUM [Concomitant]
  3. ERYTHROMYCIN [Concomitant]

REACTIONS (11)
  - CAESAREAN SECTION [None]
  - CHORIOAMNIONITIS [None]
  - DILUTIONAL COAGULOPATHY [None]
  - DRUG EXPOSURE DURING PREGNANCY [None]
  - HAEMODYNAMIC INSTABILITY [None]
  - PERITONEAL HAEMORRHAGE [None]
  - PLACENTA ACCRETA [None]
  - POSTOPERATIVE WOUND COMPLICATION [None]
  - PREMATURE RUPTURE OF MEMBRANES [None]
  - PUERPERAL PYREXIA [None]
  - WOUND DEHISCENCE [None]
